FAERS Safety Report 10190351 (Version 1)
Quarter: 2014Q2

REPORT INFORMATION
  Report Type: Spontaneous
  Country: DE (occurrence: DE)
  Receive Date: 20140522
  Receipt Date: 20140522
  Transmission Date: 20141212
  Serious: Yes (Hospitalization)
  Sender: FDA-Public Use
  Company Number: DE-GILEAD-2014-0102793

PATIENT
  Age: 51 Year
  Sex: Male
  Weight: 98.9 kg

DRUGS (3)
  1. AMBRISENTAN [Suspect]
     Indication: PULMONARY ARTERIAL HYPERTENSION
     Dosage: 5MG PER DAY
     Route: 048
     Dates: start: 20140322, end: 20140419
  2. AMBRISENTAN [Suspect]
     Dosage: UNK
     Route: 065
     Dates: start: 20140424
  3. AMBRISENTAN [Suspect]
     Dosage: UNK
     Route: 065
     Dates: start: 20110303, end: 20111112

REACTIONS (2)
  - Thrombocytopenia [Recovered/Resolved]
  - Epistaxis [Recovered/Resolved]
